FAERS Safety Report 26067307 (Version 1)
Quarter: 2025Q4

REPORT INFORMATION
  Report Type: Spontaneous
  Country: US (occurrence: US)
  Receive Date: 20251120
  Receipt Date: 20251120
  Transmission Date: 20260118
  Serious: No
  Sender: SANDOZ
  Company Number: US-SANDOZ-SDZ2025US086534

PATIENT
  Sex: Female

DRUGS (1)
  1. ADALIMUMAB [Suspect]
     Active Substance: ADALIMUMAB
     Indication: Product used for unknown indication
     Dosage: 40 MG, ADALIMUMAB (ADALIMUMAB-ADAZ)
     Route: 058

REACTIONS (2)
  - Circumstance or information capable of leading to device use error [Unknown]
  - Device malfunction [Unknown]
